FAERS Safety Report 23275164 (Version 2)
Quarter: 2023Q4

REPORT INFORMATION
  Report Type: Spontaneous
  Country: ES (occurrence: ES)
  Receive Date: 20231208
  Receipt Date: 20231214
  Transmission Date: 20240109
  Serious: Yes (Other)
  Sender: FDA-Public Use
  Company Number: ES-Merz Pharmaceuticals GmbH-23-03776

PATIENT
  Sex: Female

DRUGS (2)
  1. BOCOUTURE [Suspect]
     Active Substance: BOTULINUM TOXIN TYPE A
     Indication: Product used for unknown indication
  2. RADIESSE [Concomitant]
     Active Substance: TRIBASIC CALCIUM PHOSPHATE
     Indication: Skin cosmetic procedure

REACTIONS (1)
  - Angioedema [Recovering/Resolving]
